FAERS Safety Report 8313495-8 (Version None)
Quarter: 2012Q2

REPORT INFORMATION
  Report Type: 
  Country: None (occurrence: None)
  Receive Date: 20120426
  Receipt Date: 20120424
  Transmission Date: 20120825
  Serious: Yes (Death)
  Sender: FDA-Public Use
  Company Number: PHHY2012NL035176

PATIENT
  Sex: Male

DRUGS (4)
  1. ZOMETA [Suspect]
     Dosage: 4 MG/100 ML SOLUTION FOR IV INFUSION 1X PER 28 DAYS
     Route: 042
     Dates: start: 20120106
  2. ZOMETA [Suspect]
     Indication: PROSTATE CANCER METASTATIC
     Dosage: 4 MG/100 ML SOLUTION FOR IV INFUSION 1X PER 28 DAYS
     Route: 042
  3. ZOMETA [Suspect]
     Dosage: 4 MG/100 ML SOLUTION FOR IV INFUSION 1X PER 28 DAYS
     Route: 042
     Dates: start: 20120301
  4. ZOMETA [Suspect]
     Dosage: 4 MG/100 ML SOLUTION FOR IV INFUSION 1X PER 28 DAYS
     Route: 042
     Dates: start: 20120329

REACTIONS (3)
  - FALL [None]
  - TERMINAL STATE [None]
  - GENERAL PHYSICAL HEALTH DETERIORATION [None]
